FAERS Safety Report 6270665-0 (Version None)
Quarter: 2009Q3

REPORT INFORMATION
  Report Type: 
  Country: None (occurrence: None)
  Receive Date: 20090716
  Receipt Date: 20090707
  Transmission Date: 20100115
  Serious: Yes (Other)
  Sender: FDA-Public Use
  Company Number: PHHY2009DE27645

PATIENT
  Age: 70 Year
  Sex: Male

DRUGS (7)
  1. RASILEZ [Suspect]
     Indication: HYPERTENSION
     Dosage: 150 MG, UNK
     Dates: start: 20080101
  2. LOCHOL [Suspect]
     Dosage: UNK
     Dates: start: 20080101
  3. PANTOZOL [Concomitant]
     Dosage: UNK
     Dates: start: 20070101
  4. MICARDIS [Concomitant]
     Dosage: UNK
     Dates: start: 20070101
  5. CARMEN [Concomitant]
     Dosage: UNK
     Dates: start: 20070101
  6. PLAVIX [Concomitant]
     Dosage: UNK
     Dates: start: 20080101
  7. EZETROL [Concomitant]
     Dosage: UNK
     Dates: start: 20080101

REACTIONS (1)
  - LIPASE INCREASED [None]
